FAERS Safety Report 21810827 (Version 1)
Quarter: 2023Q1

REPORT INFORMATION
  Report Type: Spontaneous
  Country: US (occurrence: US)
  Receive Date: 20230103
  Receipt Date: 20230103
  Transmission Date: 20230417
  Serious: No
  Sender: FDA-Public Use
  Company Number: US-KYOWAKIRIN-2022BKK020327

PATIENT

DRUGS (1)
  1. NOURIANZ [Suspect]
     Active Substance: ISTRADEFYLLINE
     Indication: Saliva altered
     Dosage: 1 DF, QD
     Route: 048

REACTIONS (2)
  - Gastrointestinal inflammation [Unknown]
  - Product use in unapproved indication [Unknown]
